FAERS Safety Report 9486095 (Version 1)
Quarter: 2013Q3

REPORT INFORMATION
  Report Type: Spontaneous
  Country: US (occurrence: None)
  Receive Date: 20130826
  Receipt Date: 20130826
  Transmission Date: 20140515
  Serious: Yes (Hospitalization)
  Sender: FDA-Public Use
  Company Number: UTC-036809

PATIENT
  Age: 54 Year
  Sex: 0

DRUGS (1)
  1. REMODULIN [Suspect]
     Indication: PULMONARY ARTERIAL HYPERTENSION
     Dosage: 0.066 UG/KG 1 IN 1 MIN
     Route: 058
     Dates: start: 20121010

REACTIONS (2)
  - Infusion site abscess [None]
  - Infusion site haematoma [None]
